FAERS Safety Report 21780494 (Version 2)
Quarter: 2023Q1

REPORT INFORMATION
  Report Type: Report from Study
  Country: US (occurrence: US)
  Receive Date: 20221227
  Receipt Date: 20230130
  Transmission Date: 20230418
  Serious: No
  Sender: FDA-Public Use
  Company Number: US-ABBVIE-4250259

PATIENT
  Sex: Female

DRUGS (1)
  1. IMBRUVICA [Suspect]
     Active Substance: IBRUTINIB
     Indication: Chronic lymphocytic leukaemia (in remission)
     Route: 048
     Dates: start: 202205

REACTIONS (3)
  - Malaise [Recovering/Resolving]
  - Diarrhoea [Recovered/Resolved]
  - Bronchitis [Recovering/Resolving]
